FAERS Safety Report 18508127 (Version 2)
Quarter: 2021Q2

REPORT INFORMATION
  Report Type: Spontaneous
  Country: CA (occurrence: CA)
  Receive Date: 20201116
  Receipt Date: 20210415
  Transmission Date: 20210717
  Serious: Yes (Disabling, Other)
  Sender: FDA-Public Use
  Company Number: CA-PURDUE-USA-2020-0176355

PATIENT
  Age: 68 Year
  Sex: Male

DRUGS (3)
  1. INSULIN [Concomitant]
     Active Substance: INSULIN NOS
     Indication: PRODUCT USED FOR UNKNOWN INDICATION
     Dosage: UNK
  2. OXYCONTIN [Suspect]
     Active Substance: OXYCODONE HYDROCHLORIDE
     Indication: WOUND COMPLICATION
     Dosage: 1 DF, BID (2 EVERY 1 DAYS)
     Route: 048
  3. GABAPENTIN. [Suspect]
     Active Substance: GABAPENTIN
     Indication: WOUND COMPLICATION
     Dosage: 1 DF, BID (2 EVERY 1 DAYS)
     Route: 048

REACTIONS (4)
  - Haemorrhage [Recovering/Resolving]
  - Loss of consciousness [Recovering/Resolving]
  - Product use in unapproved indication [Recovering/Resolving]
  - Head injury [Recovering/Resolving]
